FAERS Safety Report 5942124-3 (Version None)
Quarter: 2008Q4

REPORT INFORMATION
  Report Type: 
  Country: None (occurrence: None)
  Receive Date: 20081104
  Receipt Date: 20081104
  Transmission Date: 20090506
  Serious: No
  Sender: FDA-Public Use
  Company Number: None

PATIENT
  Age: 43 Year
  Sex: Female
  Weight: 89 kg

DRUGS (1)
  1. HYDROMORPHONE HCL [Suspect]
     Dosage: 2 MG ONCE IV
     Route: 042
     Dates: start: 20071218, end: 20071218

REACTIONS (1)
  - HYPOTENSION [None]
